FAERS Safety Report 9180162 (Version 1)
Quarter: 2013Q1

REPORT INFORMATION
  Report Type: Spontaneous
  Country: BR (occurrence: BR)
  Receive Date: 20130322
  Receipt Date: 20130322
  Transmission Date: 20140127
  Serious: Yes (Other)
  Sender: FDA-Public Use
  Company Number: BR-AMGEN-BRACT2011058413

PATIENT
  Age: 56 Year
  Sex: Female
  Weight: 67 kg

DRUGS (7)
  1. ENBREL [Suspect]
     Indication: RHEUMATOID ARTHRITIS
     Dosage: 25 MG, 2 TIMES/WK
     Route: 058
     Dates: start: 20111005
  2. ENBREL [Suspect]
     Dosage: 50 MG, QWK
     Route: 058
     Dates: start: 201302
  3. PRELONE                            /00016201/ [Concomitant]
     Dosage: UNK
  4. PURAN T4 [Concomitant]
     Dosage: 50 MG, 1X/DAY
  5. METHOTREXATE [Concomitant]
     Dosage: 20 MG, ONCE WEEKLY
  6. FLUOXETINE [Concomitant]
     Dosage: 20 MG, 1X/DAY
  7. ADDERA D3 [Concomitant]
     Dosage: 10 MG, 1XDAY, 3X/WEEK

REACTIONS (9)
  - Product quality issue [Unknown]
  - Weight increased [Unknown]
  - Nausea [Unknown]
  - Pruritus [Unknown]
  - Application site mass [Unknown]
  - Urinary tract infection [Unknown]
  - Application site haematoma [Unknown]
  - Application site pain [Unknown]
  - Application site erythema [Unknown]
